FAERS Safety Report 6463949-4 (Version None)
Quarter: 2009Q4

REPORT INFORMATION
  Report Type: 
  Country: None (occurrence: None)
  Receive Date: 20091130
  Receipt Date: 20091130
  Transmission Date: 20100525
  Serious: Yes (Life-Threatening)
  Sender: FDA-Public Use
  Company Number: None

PATIENT
  Weight: 55 kg

DRUGS (10)
  1. ABELCET [Suspect]
     Indication: ANTIFUNGAL TREATMENT
     Dosage: 300 MILLIGRAMS, IV
     Route: 042
     Dates: start: 20091113
  2. ABELCET [Suspect]
     Indication: FEBRILE NEUTROPENIA
     Dosage: 300 MILLIGRAMS, IV
     Route: 042
     Dates: start: 20091113
  3. MITOXANTRONE [Concomitant]
  4. CYTARABINE [Concomitant]
  5. ETOPOSIDE [Concomitant]
  6. DEXAMTHEASONE [Concomitant]
  7. DIPHENHYDRAMINE HCL [Concomitant]
  8. FUROSEMIDE [Concomitant]
  9. MEROPENEM [Concomitant]
  10. ACYCLOVIR [Concomitant]

REACTIONS (6)
  - CARDIOTOXICITY [None]
  - INFUSION RELATED REACTION [None]
  - LUNG INFILTRATION [None]
  - PULMONARY TOXICITY [None]
  - RALES [None]
  - RESPIRATORY DISTRESS [None]
